FAERS Safety Report 21418619 (Version 9)
Quarter: 2024Q3

REPORT INFORMATION
  Report Type: Spontaneous
  Country: JP (occurrence: JP)
  Receive Date: 20221006
  Receipt Date: 20240830
  Transmission Date: 20241017
  Serious: Yes (Death, Disabling, Other)
  Sender: GLAXOSMITHKLINE
  Company Number: JP-GSKJP-JP2022JPN141540AA

PATIENT

DRUGS (10)
  1. VALTREX [Suspect]
     Active Substance: VALACYCLOVIR HYDROCHLORIDE
     Indication: Ophthalmic herpes simplex
     Dosage: 2000 MG, QD
     Route: 048
  2. ACYCLOVIR [Suspect]
     Active Substance: ACYCLOVIR
     Indication: Ophthalmic herpes simplex
     Dosage: UNK, 5 TIMES IN RIGHT EYE
     Route: 047
  3. ACYCLOVIR [Suspect]
     Active Substance: ACYCLOVIR
     Indication: Infection prophylaxis
     Dosage: 200 MG, QD
     Route: 048
     Dates: start: 20200814, end: 20210707
  4. NOXAFIL [Concomitant]
     Active Substance: POSACONAZOLE
     Indication: Antifungal prophylaxis
     Dosage: 300 MG/DAY
     Route: 048
     Dates: start: 20200814, end: 20210813
  5. SULFAMETHOXAZOLE\TRIMETHOPRIM [Concomitant]
     Active Substance: SULFAMETHOXAZOLE\TRIMETHOPRIM
     Indication: Antifungal prophylaxis
     Dosage: 1 DF
     Route: 048
     Dates: start: 20200814, end: 20210813
  6. LANSOPRAZOLE [Concomitant]
     Active Substance: LANSOPRAZOLE
     Indication: Hyperchlorhydria
     Dosage: 15 MG
     Route: 048
     Dates: start: 20200814, end: 20210813
  7. MEDROL [Concomitant]
     Active Substance: METHYLPREDNISOLONE
     Indication: Immunosuppression
     Dosage: 6 MG, QD
     Route: 048
     Dates: start: 20200814, end: 20210813
  8. SITAFLOXACIN [Concomitant]
     Active Substance: SITAFLOXACIN
     Indication: Infection prophylaxis
     Dosage: 50 MG/DAY
     Route: 048
     Dates: start: 20200814, end: 20210813
  9. CYCLOSPORINE [Concomitant]
     Active Substance: CYCLOSPORINE
     Dosage: 50 MG, QD
  10. GATIFLOXACIN [Concomitant]
     Active Substance: GATIFLOXACIN
     Dosage: UNK, 4 TIMES IN RIGHT EYE
     Route: 047

REACTIONS (27)
  - Corneal epithelium defect [Not Recovered/Not Resolved]
  - Pathogen resistance [Not Recovered/Not Resolved]
  - Ocular hyperaemia [Not Recovered/Not Resolved]
  - Ophthalmic herpes simplex [Fatal]
  - Asphyxia [Fatal]
  - Acute lymphocytic leukaemia [Fatal]
  - Condition aggravated [Fatal]
  - General physical health deterioration [Fatal]
  - Graft versus host disease in gastrointestinal tract [Fatal]
  - Ileus [Fatal]
  - Pseudomonal bacteraemia [Unknown]
  - Cataract [Unknown]
  - Cardio-respiratory arrest [Unknown]
  - Eye ulcer [Unknown]
  - Cellulitis [Unknown]
  - Cytomegalovirus infection [Unknown]
  - Epstein-Barr virus infection [Unknown]
  - Blepharitis [Unknown]
  - Nasal mucosal ulcer [Unknown]
  - Haemorrhage subcutaneous [Unknown]
  - Herpes simplex [Unknown]
  - Keratitis [Unknown]
  - Conjunctival disorder [Unknown]
  - Human herpesvirus 6 infection [Unknown]
  - Vomiting [Unknown]
  - Skin lesion [Unknown]
  - Prescribed overdose [Unknown]

NARRATIVE: CASE EVENT DATE: 20210127
